FAERS Safety Report 4932126-8 (Version None)
Quarter: 2006Q1

REPORT INFORMATION
  Report Type: 
  Country: None (occurrence: None)
  Receive Date: 20060303
  Receipt Date: 20060221
  Transmission Date: 20060701
  Serious: Yes (Hospitalization)
  Sender: FDA-Public Use
  Company Number: ES-ROCHE-437299

PATIENT
  Age: 62 Year
  Sex: Female
  Weight: 57 kg

DRUGS (12)
  1. CAPECITABINE [Suspect]
     Dosage: 14 DAYS THERAPY 7 DAYS REST
     Route: 048
     Dates: start: 20050208, end: 20050512
  2. CAPECITABINE [Suspect]
     Dosage: 14 DAYS THERAPY 7 DAYS REST
     Route: 048
     Dates: start: 20050520, end: 20051221
  3. BLINDED BEVACIZUMAB [Suspect]
     Route: 042
     Dates: start: 20050208, end: 20050512
  4. BLINDED BEVACIZUMAB [Suspect]
     Route: 042
     Dates: start: 20050520, end: 20051221
  5. OXALIPLATIN [Suspect]
     Route: 042
     Dates: start: 20050208, end: 20050512
  6. OXALIPLATIN [Suspect]
     Route: 042
     Dates: start: 20050520, end: 20051221
  7. PANTOPRAZOLE [Concomitant]
  8. SUCRALFATO [Concomitant]
  9. LORAZEPAM [Concomitant]
     Dates: start: 20050208
  10. MAYGACE [Concomitant]
  11. METAMIZOL [Concomitant]
  12. OMEPRAZOLE [Concomitant]
     Dates: start: 20050208

REACTIONS (6)
  - ABDOMINAL SEPSIS [None]
  - ENTEROCUTANEOUS FISTULA [None]
  - FEBRILE NEUTROPENIA [None]
  - INTESTINAL PERFORATION [None]
  - PAIN [None]
  - PYREXIA [None]
